FAERS Safety Report 17017403 (Version 2)
Quarter: 2020Q1

REPORT INFORMATION
  Report Type: Report from Study
  Country: IT (occurrence: IT)
  Receive Date: 20191111
  Receipt Date: 20200108
  Transmission Date: 20200409
  Serious: Yes (Other)
  Sender: FDA-Public Use
  Company Number: PHHY2018IT147212

PATIENT
  Age: 30 Year
  Sex: Female

DRUGS (1)
  1. SIGNIFOR [Suspect]
     Active Substance: PASIREOTIDE DIASPARTATE
     Indication: PITUITARY-DEPENDENT CUSHING^S SYNDROME
     Dosage: UNK
     Route: 058
     Dates: start: 20180213

REACTIONS (15)
  - Myalgia [Recovered/Resolved]
  - Diffuse alopecia [Recovered/Resolved]
  - Hyperadrenocorticism [Recovered/Resolved]
  - Asthenia [Recovered/Resolved]
  - Headache [Recovered/Resolved]
  - Hyperglycaemia [Recovered/Resolved]
  - Hyperadrenocorticism [Recovered/Resolved]
  - Diffuse alopecia [Recovered/Resolved]
  - Hyperadrenocorticism [Recovered/Resolved]
  - Arthralgia [Recovered/Resolved]
  - Asthenia [Unknown]
  - Tendonitis [Recovered/Resolved]
  - Decreased appetite [Unknown]
  - Diffuse alopecia [Unknown]
  - Hypertension [Recovered/Resolved]

NARRATIVE: CASE EVENT DATE: 20180213
